FAERS Safety Report 5094271-9 (Version None)
Quarter: 2006Q3

REPORT INFORMATION
  Report Type: 
  Country: None (occurrence: None)
  Receive Date: 20060831
  Receipt Date: 20060828
  Transmission Date: 20061208
  Serious: Yes (Life-Threatening)
  Sender: FDA-Public Use
  Company Number: FR-GLAXOSMITHKLINE-B0436179A

PATIENT
  Age: 81 Year
  Sex: Female

DRUGS (13)
  1. AUGMENTIN '125' [Suspect]
     Dosage: 1G SINGLE DOSE
     Route: 042
     Dates: start: 20060814, end: 20060814
  2. AUGMENTIN '125' [Suspect]
     Indication: ANAPHYLACTIC SHOCK
     Route: 065
     Dates: start: 20060814
  3. TIAPRIDAL [Concomitant]
     Route: 065
  4. PRAZEPAM [Concomitant]
     Route: 065
  5. HYDREA [Concomitant]
     Route: 065
  6. FUROSEMIDE [Concomitant]
     Route: 065
  7. PROTHIADEN [Concomitant]
     Route: 065
  8. SINGULAIR [Concomitant]
     Route: 065
  9. ARICEPT [Concomitant]
     Route: 065
  10. TRANQUITAL [Concomitant]
     Route: 065
  11. MOPRAL [Concomitant]
     Route: 065
  12. CALCIPARINE [Concomitant]
     Route: 065
  13. ASPEGIC 1000 [Concomitant]
     Route: 065

REACTIONS (3)
  - ANAPHYLACTIC SHOCK [None]
  - SHOCK [None]
  - URTICARIA GENERALISED [None]
